FAERS Safety Report 13841403 (Version 1)
Quarter: 2017Q3

REPORT INFORMATION
  Report Type: Spontaneous
  Country: US (occurrence: US)
  Receive Date: 20170807
  Receipt Date: 20170807
  Transmission Date: 20171127
  Serious: Yes (Other)
  Sender: FDA-Public Use
  Company Number: US-BAUSCH-BL-2017-023108

PATIENT
  Age: 83 Year
  Sex: Male

DRUGS (2)
  1. LUCENTIS [Suspect]
     Active Substance: RANIBIZUMAB
     Indication: POLYPOIDAL CHOROIDAL VASCULOPATHY
     Dosage: 5 YEARS EARLIER
     Route: 050
     Dates: start: 2012
  2. VISUDYNE [Suspect]
     Active Substance: VERTEPORFIN
     Indication: POLYPOIDAL CHOROIDAL VASCULOPATHY
     Dosage: 5 YEARS EARLIER
     Route: 042
     Dates: start: 2012

REACTIONS (3)
  - Visual acuity reduced [Unknown]
  - Polypoidal choroidal vasculopathy [Recovering/Resolving]
  - Disease progression [Recovering/Resolving]
